FAERS Safety Report 15312997 (Version 27)
Quarter: 2020Q3

REPORT INFORMATION
  Report Type: Spontaneous
  Country: US (occurrence: US)
  Receive Date: 20180823
  Receipt Date: 20200810
  Transmission Date: 20201102
  Serious: Yes (Hospitalization, Other)
  Sender: FDA-Public Use
  Company Number: US-ACTELION-A-US2018-173297

PATIENT
  Age: 38 Year
  Sex: Female
  Weight: 68.03 kg

DRUGS (32)
  1. APAP CODEINE [Concomitant]
  2. CALCIFEROL [Concomitant]
     Dosage: UNK
     Dates: start: 20160219
  3. FUROSEMIDE. [Concomitant]
     Active Substance: FUROSEMIDE
     Dosage: 10 MG/ML, UNK
     Dates: start: 20180219
  4. TRIAMCINOLONE [Concomitant]
     Active Substance: TRIAMCINOLONE
     Route: 061
  5. OXYCODONE [Concomitant]
     Active Substance: OXYCODONE
     Dosage: 10 MG, UNK
     Dates: start: 20161128
  6. LORAZEPAM. [Concomitant]
     Active Substance: LORAZEPAM
     Dosage: 0.5 MG, UNK
     Dates: start: 20161021
  7. VELETRI [Suspect]
     Active Substance: EPOPROSTENOL
     Dosage: UNK
     Route: 042
  8. SILDENAFIL. [Concomitant]
     Active Substance: SILDENAFIL
     Indication: PULMONARY ARTERIAL HYPERTENSION
     Dosage: 80 MG, TID
     Dates: start: 20140813
  9. SILDENAFIL CITRATE. [Concomitant]
     Active Substance: SILDENAFIL CITRATE
  10. VELETRI [Suspect]
     Active Substance: EPOPROSTENOL
     Dosage: 20 NG/KG, PER MIN
     Route: 042
  11. ELIQUIS [Concomitant]
     Active Substance: APIXABAN
     Dosage: 5 MG, UNK
     Dates: start: 20180306
  12. VIRTUSSIN AC [Concomitant]
     Active Substance: CODEINE PHOSPHATE\GUAIFENESIN
  13. GABAPENTIN. [Concomitant]
     Active Substance: GABAPENTIN
  14. WARFARIN [Concomitant]
     Active Substance: WARFARIN
  15. VELETRI [Suspect]
     Active Substance: EPOPROSTENOL
     Dosage: 25 NG/KG, PER MIN
     Route: 042
  16. OPSUMIT [Suspect]
     Active Substance: MACITENTAN
     Dosage: 10 MG, QD
     Route: 048
  17. CLINDAMYCIN. [Concomitant]
     Active Substance: CLINDAMYCIN
  18. ESCITALOPRAM [Concomitant]
     Active Substance: ESCITALOPRAM OXALATE
  19. FLUCONAZOLE. [Concomitant]
     Active Substance: FLUCONAZOLE
  20. DOXYCYCLINE MONOHYDRATE [Concomitant]
     Active Substance: DOXYCYCLINE
  21. BACLOFEN. [Concomitant]
     Active Substance: BACLOFEN
  22. OLANZAPINE. [Concomitant]
     Active Substance: OLANZAPINE
     Dosage: 5 MG, UNK
     Dates: start: 20161128
  23. VELETRI [Suspect]
     Active Substance: EPOPROSTENOL
     Indication: PULMONARY HYPERTENSION
     Dosage: 20 NG/KG, PER MIN
     Route: 042
  24. VELETRI [Suspect]
     Active Substance: EPOPROSTENOL
     Dosage: 26 NG/KG, PER MIN
     Route: 042
     Dates: start: 20170913
  25. OPSUMIT [Suspect]
     Active Substance: MACITENTAN
     Indication: PULMONARY HYPERTENSION
     Dosage: 10 MG, QD
     Route: 048
     Dates: start: 20171024
  26. LYRICA [Concomitant]
     Active Substance: PREGABALIN
     Dosage: 75 MG, UNK
     Dates: start: 20180904
  27. VELETRI [Suspect]
     Active Substance: EPOPROSTENOL
     Dosage: 22 NG/KG, PER MIN
     Route: 042
  28. VITAMIN D [Concomitant]
     Active Substance: VITAMIN D NOS
  29. PROMETHAZINE [Concomitant]
     Active Substance: PROMETHAZINE HYDROCHLORIDE
  30. POTASSIUM CHLORIDE. [Concomitant]
     Active Substance: POTASSIUM CHLORIDE
  31. BENZONATATE. [Concomitant]
     Active Substance: BENZONATATE
  32. ORENITRAM [Concomitant]
     Active Substance: TREPROSTINIL

REACTIONS (42)
  - Headache [Unknown]
  - Illness [Unknown]
  - Pulmonary arterial hypertension [Unknown]
  - Blood iron decreased [Unknown]
  - Hypoxia [Unknown]
  - Flushing [Unknown]
  - Diarrhoea [Recovering/Resolving]
  - Jaw disorder [Unknown]
  - Device related infection [Not Recovered/Not Resolved]
  - Vascular device infection [Unknown]
  - Thrombosis [Unknown]
  - Dyspnoea [Unknown]
  - Catheter site irritation [Unknown]
  - Pain of skin [Unknown]
  - Intentional medical device removal by patient [Unknown]
  - Catheter management [Unknown]
  - Hyperhidrosis [Unknown]
  - Vomiting [Unknown]
  - Catheter site haemorrhage [Unknown]
  - Catheter site pruritus [Unknown]
  - Anaemia [Unknown]
  - Gastroenteritis viral [Unknown]
  - Pain [Unknown]
  - Device leakage [Unknown]
  - Rash [Recovering/Resolving]
  - Pulmonary arterial pressure increased [Unknown]
  - Therapy change [Unknown]
  - Catheter site erythema [Unknown]
  - Fear [Unknown]
  - Acute respiratory failure [Unknown]
  - Tachycardia [Unknown]
  - Suicide attempt [Unknown]
  - Back pain [Unknown]
  - Abdominal pain upper [Unknown]
  - Nausea [Unknown]
  - Chest pain [Unknown]
  - Pneumonia [Unknown]
  - Sepsis [Unknown]
  - Pleural effusion [Unknown]
  - Transfusion [Unknown]
  - Dyspnoea exertional [Unknown]
  - Skin irritation [Unknown]

NARRATIVE: CASE EVENT DATE: 201811
